FAERS Safety Report 7525027-2 (Version None)
Quarter: 2011Q2

REPORT INFORMATION
  Report Type: 
  Country: None (occurrence: None)
  Receive Date: 20110526
  Receipt Date: 20110513
  Transmission Date: 20111010
  Serious: Yes (Hospitalization)
  Sender: FDA-Public Use
  Company Number: 2011MA005886

PATIENT
  Age: 88 Year
  Sex: Female
  Weight: 58 kg

DRUGS (2)
  1. TRIMETHOPRIM [Concomitant]
  2. SULFATRIM PEDIATRIC [Suspect]
     Dosage: 800 MG, Q12, PO
     Route: 048

REACTIONS (8)
  - DECREASED APPETITE [None]
  - RASH ERYTHEMATOUS [None]
  - PLATELET COUNT DECREASED [None]
  - FATIGUE [None]
  - DIZZINESS [None]
  - PETECHIAE [None]
  - MENTAL STATUS CHANGES [None]
  - BLOOD PRESSURE DECREASED [None]
